FAERS Safety Report 8439936-3 (Version None)
Quarter: 2012Q2

REPORT INFORMATION
  Report Type: 
  Country: None (occurrence: None)
  Receive Date: 20120615
  Receipt Date: 20120611
  Transmission Date: 20120825
  Serious: Yes (Disabling)
  Sender: FDA-Public Use
  Company Number: US-B.I. PHARMACEUTICALS,INC./RIDGEFIELD-2012-BP-13486BP

PATIENT
  Sex: Male

DRUGS (4)
  1. OXYGEN [Concomitant]
     Indication: EMPHYSEMA
  2. SPIRIVA [Suspect]
     Indication: CHRONIC OBSTRUCTIVE PULMONARY DISEASE
     Dosage: 36 MCG
     Route: 055
     Dates: start: 20110101
  3. SPIRIVA [Suspect]
     Indication: EMPHYSEMA
  4. OXYGEN [Concomitant]
     Indication: CHRONIC OBSTRUCTIVE PULMONARY DISEASE
     Route: 055

REACTIONS (2)
  - BLINDNESS [None]
  - INCORRECT DOSE ADMINISTERED [None]
